FAERS Safety Report 9374291 (Version 5)
Quarter: 2013Q3

REPORT INFORMATION
  Report Type: Spontaneous
  Country: US (occurrence: US)
  Receive Date: 20130628
  Receipt Date: 20130819
  Transmission Date: 20140515
  Serious: Yes (Other)
  Sender: FDA-Public Use
  Company Number: US-PFIZER INC-2013192358

PATIENT
  Age: 67 Year
  Sex: Female

DRUGS (4)
  1. LYRICA [Suspect]
     Indication: ARTHRITIS
     Dosage: 100 MG, 2X/DAY
  2. LYRICA [Suspect]
     Indication: FIBROMYALGIA
  3. CELEBREX [Suspect]
     Indication: ARTHRITIS
     Dosage: 200 MG, 1X/DAY
  4. CELEBREX [Suspect]
     Indication: FIBROMYALGIA

REACTIONS (3)
  - Off label use [Unknown]
  - Drug dependence [Unknown]
  - Panic reaction [Unknown]
